FAERS Safety Report 5299688-5 (Version None)
Quarter: 2007Q2

REPORT INFORMATION
  Report Type: 
  Country: None (occurrence: None)
  Receive Date: 20070410
  Receipt Date: 20070329
  Transmission Date: 20071010
  Serious: Yes (Hospitalization)
  Sender: FDA-Public Use
  Company Number: GXKR2007NZ03049

PATIENT
  Age: 46 Year
  Sex: Male

DRUGS (3)
  1. ALLOPURINOL [Suspect]
  2. COLCHICINE(COLCHICINE) [Suspect]
  3. NAPROSYN [Suspect]

REACTIONS (3)
  - HYPOTENSION [None]
  - METABOLIC ACIDOSIS [None]
  - MULTIPLE DRUG OVERDOSE INTENTIONAL [None]
